FAERS Safety Report 13264077 (Version 1)
Quarter: 2017Q1

REPORT INFORMATION
  Report Type: Spontaneous
  Country: US (occurrence: US)
  Receive Date: 20170222
  Receipt Date: 20170222
  Transmission Date: 20170428
  Serious: Yes (Hospitalization, Other)
  Sender: FDA-Public Use
  Company Number: None

PATIENT
  Age: 48 Year
  Sex: Female
  Weight: 98.55 kg

DRUGS (14)
  1. QUETIAPINE (SEROQUEL) [Concomitant]
  2. MIRABEGRON [Suspect]
     Active Substance: MIRABEGRON
     Indication: PAIN
     Dosage: ?          QUANTITY:1 TABLET(S);?
     Route: 048
     Dates: start: 20160808, end: 20160920
  3. ASPIRIN EC (ECOTRIN) [Concomitant]
  4. POTASSIUM CHLORIDE (MICRO-K_ [Concomitant]
  5. NORVASC [Concomitant]
     Active Substance: AMLODIPINE BESYLATE
  6. CIPROFLOXACIN HCI (CIPRO) [Concomitant]
  7. MOBIC [Concomitant]
     Active Substance: MELOXICAM
  8. SULFAMETHOXAZOLE-TRIMETHOPRIN (BACTROM DS_ [Concomitant]
  9. ZOCOR [Concomitant]
     Active Substance: SIMVASTATIN
  10. VALSARTAN (DIOVAN) [Concomitant]
  11. ONDANSETRON ODT (ZOFRAN ODT) [Concomitant]
  12. MIRABEGRON [Suspect]
     Active Substance: MIRABEGRON
     Indication: URINARY TRACT INFECTION
     Dosage: ?          QUANTITY:1 TABLET(S);?
     Route: 048
     Dates: start: 20160808, end: 20160920
  13. MULTIVITIS, STRESS FORMULA [Concomitant]
  14. VILAZODONE (VIIBRYD) [Concomitant]

REACTIONS (1)
  - Hospitalisation [None]

NARRATIVE: CASE EVENT DATE: 20160820
